FAERS Safety Report 4854500-0 (Version None)
Quarter: 2005Q4

REPORT INFORMATION
  Report Type: 
  Country: None (occurrence: None)
  Receive Date: 20051215
  Receipt Date: 20051212
  Transmission Date: 20060501
  Serious: Yes (Hospitalization, Other)
  Sender: FDA-Public Use
  Company Number: 2005AP06367

PATIENT
  Age: 29102 Day
  Sex: Male

DRUGS (9)
  1. SAVENTENS [Suspect]
     Indication: HYPERTENSION
     Route: 048
  2. CARDENALIN [Suspect]
     Indication: HYPERTENSION
     Route: 048
  3. ADALAT [Concomitant]
     Route: 048
  4. GASTROM [Concomitant]
     Route: 048
  5. ALEVIATIN [Concomitant]
     Route: 048
  6. MAGNESIUM OXIDE [Concomitant]
     Route: 048
  7. MYSLEE [Concomitant]
     Route: 048
  8. CORTRIL [Concomitant]
     Route: 048
  9. FLORINEF [Concomitant]
     Route: 048

REACTIONS (3)
  - CONVULSION [None]
  - HYPONATRAEMIA [None]
  - SUBDURAL HAEMATOMA [None]
